FAERS Safety Report 9875635 (Version 2)
Quarter: 2014Q1

REPORT INFORMATION
  Report Type: Other
  Country: US (occurrence: US)
  Receive Date: 20140206
  Receipt Date: 20140206
  Transmission Date: 20141002
  Serious: No
  Sender: FDA-Public Use
  Company Number: US-ACORDA-ACO_36650_2013

PATIENT
  Age: 50 Year
  Sex: Female
  Weight: 72.56 kg

DRUGS (2)
  1. AMPYRA [Suspect]
     Indication: MULTIPLE SCLEROSIS
     Dosage: 10 MG, BID
     Route: 048
     Dates: start: 201304
  2. ALL OTHER THERAPEUTIC PRODUCTS [Concomitant]
     Indication: HYPOTONIA
     Dosage: UNK,UNK
     Route: 065

REACTIONS (4)
  - Muscle spasms [Unknown]
  - Gait disturbance [Unknown]
  - Paraesthesia [Recovered/Resolved]
  - Insomnia [Recovered/Resolved]
